FAERS Safety Report 15458780 (Version 1)
Quarter: 2018Q4

REPORT INFORMATION
  Report Type: Spontaneous
  Country: US (occurrence: US)
  Receive Date: 20181003
  Receipt Date: 20181003
  Transmission Date: 20190204
  Serious: No
  Sender: FDA-Public Use
  Company Number: US-ENDO PHARMACEUTICALS INC-2018-040687

PATIENT
  Sex: Male

DRUGS (7)
  1. VALSTAR [Suspect]
     Active Substance: VALRUBICIN
     Dosage: THIRD INSTILLATION
     Route: 043
     Dates: start: 2018
  2. VALSTAR [Suspect]
     Active Substance: VALRUBICIN
     Dosage: FIFTH INSTILLATION
     Route: 043
     Dates: start: 2018
  3. VALSTAR [Suspect]
     Active Substance: VALRUBICIN
     Dosage: SECOND INSTILLATION
     Route: 043
     Dates: start: 2018
  4. VALSTAR [Suspect]
     Active Substance: VALRUBICIN
     Indication: BLADDER CANCER
     Dosage: SIXTH INSTILLATION
     Route: 043
     Dates: start: 2018
  5. VALSTAR [Suspect]
     Active Substance: VALRUBICIN
     Dosage: REPEAT OF SIXTH INSTILLATION
     Route: 043
     Dates: start: 2018, end: 2018
  6. VALSTAR [Suspect]
     Active Substance: VALRUBICIN
     Dosage: FIRST INSTILLATION
     Route: 043
     Dates: start: 2018
  7. VALSTAR [Suspect]
     Active Substance: VALRUBICIN
     Dosage: FOURTH INSTILLATION
     Route: 043
     Dates: start: 2018

REACTIONS (6)
  - Urge incontinence [Recovered/Resolved]
  - Decreased appetite [Not Recovered/Not Resolved]
  - Somnolence [Not Recovered/Not Resolved]
  - Underdose [Recovered/Resolved]
  - Bladder instillation procedure [Recovered/Resolved]
  - Fatigue [Not Recovered/Not Resolved]

NARRATIVE: CASE EVENT DATE: 2018
